FAERS Safety Report 15385985 (Version 1)
Quarter: 2018Q3

REPORT INFORMATION
  Report Type: Spontaneous
  Country: US (occurrence: US)
  Receive Date: 20180907
  Receipt Date: 20180907
  Transmission Date: 20181010
  Serious: No
  Sender: FDA-Public Use
  Company Number: None

PATIENT
  Age: 65 Year
  Sex: Female
  Weight: 110.68 kg

DRUGS (2)
  1. RASUVO [Suspect]
     Active Substance: METHOTREXATE SODIUM
  2. ENBREL [Suspect]
     Active Substance: ETANERCEPT

REACTIONS (3)
  - Hypoaesthesia [None]
  - Rotator cuff syndrome [None]
  - Mouth ulceration [None]
